FAERS Safety Report 9061998 (Version 1)
Quarter: 2013Q1

REPORT INFORMATION
  Report Type: Spontaneous
  Country: GB (occurrence: None)
  Receive Date: 20130122
  Receipt Date: 20130122
  Transmission Date: 20140127
  Serious: Yes (Life-Threatening, Other)
  Sender: FDA-Public Use
  Company Number: 2009AP001247

PATIENT
  Age: 43 Year
  Sex: Female

DRUGS (2)
  1. CITALOPRAM HYDROBROMIDE [Suspect]
     Indication: ANXIETY
     Dosage: 10 MG ; UNKNOWN ; PO ; UNK
     Route: 048
     Dates: start: 20090207, end: 20090215
  2. CITALOPRAM HYDROBROMIDE [Suspect]
     Indication: ANXIETY
     Dosage: 10 MG ; UNKNOWN ; PO ; UNK
     Route: 048
     Dates: start: 20090207, end: 20090215

REACTIONS (2)
  - Intentional overdose [None]
  - Panic attack [None]
